FAERS Safety Report 18050773 (Version 2)
Quarter: 2020Q3

REPORT INFORMATION
  Report Type: Report from Study
  Country: AU (occurrence: AU)
  Receive Date: 20200721
  Receipt Date: 20200826
  Transmission Date: 20201103
  Serious: Yes (Hospitalization)
  Sender: FDA-Public Use
  Company Number: AU-JNJFOC-20200715153

PATIENT
  Age: 73 Year
  Sex: Male
  Weight: 82 kg

DRUGS (37)
  1. OXYCONTIN [Concomitant]
     Active Substance: OXYCODONE HYDROCHLORIDE
     Indication: BACK PAIN
     Route: 048
     Dates: start: 2012
  2. FISH OIL [Concomitant]
     Active Substance: FISH OIL
     Indication: VITAMIN SUPPLEMENTATION
     Route: 048
     Dates: start: 20190202
  3. INTRAGAM P [Concomitant]
     Active Substance: HUMAN IMMUNOGLOBULIN G
     Indication: INFECTION PROPHYLAXIS
     Route: 042
     Dates: start: 20190328
  4. SOMAC [Concomitant]
     Active Substance: PANTOPRAZOLE SODIUM
     Indication: GASTRIC ULCER
     Route: 048
     Dates: start: 2013
  5. SERETIDE [Concomitant]
     Active Substance: FLUTICASONE PROPIONATE\SALMETEROL XINAFOATE
     Indication: ASTHMA
     Dosage: 1 PUFF
     Dates: start: 20160512
  6. PARACETAMOL OSTEO [Concomitant]
     Indication: ARTHRITIS
     Route: 048
     Dates: start: 20180816
  7. LASIX [Concomitant]
     Active Substance: FUROSEMIDE
     Indication: OEDEMA PERIPHERAL
     Route: 048
     Dates: start: 20180524
  8. ZYRTEC [Concomitant]
     Active Substance: CETIRIZINE HYDROCHLORIDE
     Indication: ALLERGY TO ANIMAL
     Route: 048
     Dates: start: 20200312
  9. AUGMENTIN?DUO [Concomitant]
     Active Substance: AMOXICILLIN\CLAVULANATE POTASSIUM
     Indication: PNEUMOTHORAX
     Dosage: 500/125 MG
     Route: 048
     Dates: start: 20200603, end: 20200608
  10. ADVANTAN [Concomitant]
     Active Substance: METHYLPREDNISOLONE ACEPONATE
     Indication: POSTOPERATIVE WOUND INFECTION
     Route: 061
     Dates: start: 20191002
  11. TACROLIMUS. [Concomitant]
     Active Substance: TACROLIMUS
     Indication: ROSACEA
     Route: 061
     Dates: start: 20200417
  12. ZOLEDRONIC ACID [Concomitant]
     Active Substance: ZOLEDRONIC ACID
     Indication: OSTEOPOROSIS PROPHYLAXIS
     Route: 042
     Dates: start: 20200423
  13. LIPITOR [Concomitant]
     Active Substance: ATORVASTATIN CALCIUM
     Indication: BLOOD CHOLESTEROL INCREASED
     Route: 048
     Dates: start: 2011
  14. DEXAMETHASONE. [Suspect]
     Active Substance: DEXAMETHASONE
     Indication: PLASMA CELL MYELOMA
     Dosage: TWICE WEEKLY FOR 3 WEEKS OUT OF EVERY 4
     Route: 048
     Dates: start: 20150112
  15. RESTAVIT [Concomitant]
     Active Substance: DOXYLAMINE SUCCINATE
     Indication: INSOMNIA
     Route: 048
     Dates: start: 20190607
  16. NUROFEN                            /00109201/ [Concomitant]
     Active Substance: IBUPROFEN
     Indication: HEADACHE
     Route: 048
     Dates: start: 20191228
  17. MAGNESIUM                          /00082501/ [Concomitant]
     Active Substance: ALUMINUM HYDROXIDE\MAGNESIUM HYDROXIDE
     Indication: MUSCLE SPASMS
     Route: 048
     Dates: start: 202001
  18. PHENERGAN [Concomitant]
     Active Substance: PROMETHAZINE HYDROCHLORIDE
     Indication: ALLERGY TO ANIMAL
     Dosage: 1 TABLET
     Route: 048
     Dates: start: 20200312
  19. FLUCLOXACILLIN [Concomitant]
     Active Substance: FLUCLOXACILLIN
     Indication: RASH PUSTULAR
     Route: 048
     Dates: start: 20200524
  20. DARATUMUMAB [Suspect]
     Active Substance: DARATUMUMAB
     Indication: PLASMA CELL MYELOMA
     Dosage: EVERY 28 DAYS?MED KIT NUMBER 204292
     Route: 042
     Dates: start: 20150112
  21. LENALIDOMIDE [Suspect]
     Active Substance: LENALIDOMIDE
     Indication: PLASMA CELL MYELOMA
     Dosage: 21 DAYS OF EVERY 28 DAY CYCLE
     Route: 048
     Dates: start: 20150112
  22. VALTREX [Concomitant]
     Active Substance: VALACYCLOVIR HYDROCHLORIDE
     Indication: PROPHYLAXIS
     Route: 048
     Dates: start: 2011
  23. LYSINE [Concomitant]
     Active Substance: LYSINE
     Indication: PROPHYLAXIS
     Route: 048
     Dates: start: 201512
  24. MAGNESIUM                          /00082501/ [Concomitant]
     Active Substance: ALUMINUM HYDROXIDE\MAGNESIUM HYDROXIDE
     Indication: MUSCLE SPASMS
     Route: 048
     Dates: start: 20190617
  25. CHLORSIG [Concomitant]
     Active Substance: CHLORAMPHENICOL
     Indication: EYE INFECTION
     Dosage: 1 OTHER
     Route: 047
     Dates: start: 20191201
  26. GASTROSTOP [Concomitant]
     Indication: IRRITABLE BOWEL SYNDROME
     Dosage: 2 TABLET
     Route: 048
     Dates: start: 20191226
  27. MOBIC [Concomitant]
     Active Substance: MELOXICAM
     Indication: NECK PAIN
     Route: 048
     Dates: start: 20200108
  28. DOXYCYCLINE. [Concomitant]
     Active Substance: DOXYCYCLINE
     Indication: ROSACEA
     Route: 048
     Dates: start: 20200417, end: 20200610
  29. NEOTIGASON [Concomitant]
     Active Substance: ACITRETIN
     Indication: NEOPLASM PROPHYLAXIS
     Route: 048
     Dates: start: 20200604
  30. MOMETASONE FUROATE. [Concomitant]
     Active Substance: MOMETASONE FUROATE
     Indication: NASOPHARYNGITIS
     Dosage: 2 SPRAY
     Route: 045
     Dates: start: 20180717
  31. FUNGILIN [Concomitant]
     Active Substance: AMPHOTERICIN B
     Indication: ORAL CANDIDIASIS
     Route: 048
     Dates: start: 20191121
  32. CHLORSIG [Concomitant]
     Active Substance: CHLORAMPHENICOL
     Indication: SQUAMOUS CELL CARCINOMA
     Dosage: 1 OTHER
     Route: 061
     Dates: start: 20200117
  33. OXYCODONE [Concomitant]
     Active Substance: OXYCODONE
     Indication: BACK PAIN
     Route: 048
     Dates: start: 201203
  34. TESTOSTERONE. [Concomitant]
     Active Substance: TESTOSTERONE
     Indication: BLOOD TESTOSTERONE DECREASED
     Route: 061
     Dates: start: 20190524
  35. APIXABAN [Concomitant]
     Active Substance: APIXABAN
     Indication: DEEP VEIN THROMBOSIS
     Route: 048
     Dates: start: 20190328
  36. DENCORUB [Concomitant]
     Indication: HEADACHE
     Dosage: 1 OTHER
     Route: 061
     Dates: start: 20200101
  37. VITAMIN D                          /00107901/ [Concomitant]
     Active Substance: ERGOCALCIFEROL
     Indication: VITAMIN D DEFICIENCY
     Route: 048
     Dates: start: 20190419

REACTIONS (2)
  - Infective exacerbation of bronchiectasis [Recovered/Resolved]
  - Skin cancer [Not Recovered/Not Resolved]

NARRATIVE: CASE EVENT DATE: 20200703
